FAERS Safety Report 16647965 (Version 1)
Quarter: 2019Q3

REPORT INFORMATION
  Report Type: Spontaneous
  Country: US (occurrence: US)
  Receive Date: 20190617
  Receipt Date: 20190617
  Transmission Date: 20191004
  Serious: Yes (Death)
  Sender: FDA-Public Use
  Company Number: None

PATIENT
  Age: 38 Year
  Sex: Male

DRUGS (14)
  1. SPRYCEL [Suspect]
     Active Substance: DASATINIB
     Indication: LEUKAEMIA
     Route: 048
     Dates: start: 20181214, end: 201906
  2. ACYCLOVIR. [Concomitant]
     Active Substance: ACYCLOVIR
  3. AZITHROMYCIN ANHYDROUS. [Concomitant]
     Active Substance: AZITHROMYCIN ANHYDROUS
  4. AMOX/CLAV [Concomitant]
     Active Substance: AMOXICILLIN\CLAVULANATE POTASSIUM
  5. LORAZEPAM. [Concomitant]
     Active Substance: LORAZEPAM
  6. TRAMADOL. [Concomitant]
     Active Substance: TRAMADOL
  7. PANTOPRAZOLE [Concomitant]
     Active Substance: PANTOPRAZOLE
  8. PROMETHAZINE DM [Concomitant]
     Active Substance: DEXTROMETHORPHAN HYDROBROMIDE\PROMETHAZINE HYDROCHLORIDE
  9. CETIRIZINE [Concomitant]
     Active Substance: CETIRIZINE HYDROCHLORIDE
  10. LEVETIRACETAM. [Concomitant]
     Active Substance: LEVETIRACETAM
  11. MONTELUKAST [Concomitant]
     Active Substance: MONTELUKAST SODIUM
  12. METOPROLOL. [Concomitant]
     Active Substance: METOPROLOL
  13. DEXAMETHASONE. [Concomitant]
     Active Substance: DEXAMETHASONE
  14. AMLODOPINE [Concomitant]
     Active Substance: AMLODIPINE BESYLATE

REACTIONS (1)
  - Death [None]

NARRATIVE: CASE EVENT DATE: 20190605
